FAERS Safety Report 23527162 (Version 1)
Quarter: 2024Q1

REPORT INFORMATION
  Report Type: Spontaneous
  Country: MX (occurrence: MX)
  Receive Date: 20240215
  Receipt Date: 20240215
  Transmission Date: 20240410
  Serious: Yes (Other)
  Sender: FDA-Public Use
  Company Number: MX-ULTRAGENYX PHARMACEUTICAL INC.-MX-UGX-24-00226

PATIENT
  Age: 19 Year

DRUGS (2)
  1. MEPSEVII [Suspect]
     Active Substance: VESTRONIDASE ALFA-VJBK
     Indication: Mucopolysaccharidosis VII
     Dosage: UNK
     Route: 042
  2. MEPSEVII [Suspect]
     Active Substance: VESTRONIDASE ALFA-VJBK
     Dosage: UNK
     Route: 042
     Dates: start: 20240131

REACTIONS (5)
  - Petit mal epilepsy [Recovered/Resolved]
  - Abnormal behaviour [Recovered/Resolved]
  - Inappropriate affect [Recovered/Resolved]
  - Crying [Recovered/Resolved]
  - Irritability [Recovered/Resolved]

NARRATIVE: CASE EVENT DATE: 20240131
